FAERS Safety Report 6687074-2 (Version None)
Quarter: 2010Q2

REPORT INFORMATION
  Report Type: 
  Country: None (occurrence: None)
  Receive Date: 20100419
  Receipt Date: 20100407
  Transmission Date: 20101027
  Serious: Yes (Other)
  Sender: FDA-Public Use
  Company Number: US-PFIZER INC-2010033411

PATIENT
  Sex: Female
  Weight: 55.3 kg

DRUGS (11)
  1. ESTRING [Suspect]
     Indication: ATROPHIC VULVOVAGINITIS
     Dosage: 2 MG, UNK
     Dates: start: 20100126, end: 20100219
  2. ESTRING [Suspect]
     Indication: VULVOVAGINAL DRYNESS
     Dosage: 2 MG, UNK
     Route: 067
     Dates: start: 20100221, end: 20100312
  3. PREDNISONE [Concomitant]
     Indication: POLYMYALGIA RHEUMATICA
     Dosage: 3 MG, UNK
  4. PREDNISONE [Concomitant]
     Dosage: 2 MG, 1X/DAY
  5. ATENOLOL [Concomitant]
     Indication: HYPERTENSION
     Dosage: 0.25 MG, 1X/DAY
  6. CALCIUM [Concomitant]
     Dosage: UNK
  7. MAGNESIUM [Concomitant]
     Dosage: UNK
  8. MULTI-VITAMINS [Concomitant]
     Dosage: UNK
  9. ACYCLOVIR [Concomitant]
     Dosage: UNK, 2X/WEEK
  10. IBANDRONATE SODIUM [Concomitant]
     Dosage: UNK
  11. NEXIUM [Concomitant]
     Dosage: UNK

REACTIONS (6)
  - DRUG INEFFECTIVE [None]
  - FEELING ABNORMAL [None]
  - RASH [None]
  - VAGINAL DISCHARGE [None]
  - VAGINAL LACERATION [None]
  - VULVOVAGINAL DISCOMFORT [None]
